FAERS Safety Report 6534945-3 (Version None)
Quarter: 2010Q1

REPORT INFORMATION
  Report Type: 
  Country: None (occurrence: None)
  Receive Date: 20100112
  Receipt Date: 20100106
  Transmission Date: 20100710
  Serious: Yes (Hospitalization)
  Sender: FDA-Public Use
  Company Number: GB-AMGEN-QUU384149

PATIENT
  Age: 63 Year
  Sex: Female

DRUGS (3)
  1. VECTIBIX [Suspect]
     Indication: COLORECTAL CANCER
     Route: 042
     Dates: start: 20061206, end: 20061212
  2. ELOXATIN (SANOFI) [Suspect]
     Indication: COLORECTAL CANCER
     Route: 042
     Dates: start: 20060606, end: 20060606
  3. FLUOROURACIL [Suspect]
     Indication: COLORECTAL CANCER
     Route: 042
     Dates: start: 20061206

REACTIONS (2)
  - CATHETER SITE INFECTION [None]
  - NEUTROPENIA [None]
